FAERS Safety Report 4784561-9 (Version None)
Quarter: 2005Q3

REPORT INFORMATION
  Report Type: 
  Country: None (occurrence: None)
  Receive Date: 20050928
  Receipt Date: 20050912
  Transmission Date: 20060218
  Serious: Yes (Other)
  Sender: FDA-Public Use
  Company Number: A-US2005-10345

PATIENT
  Age: 59 Year
  Sex: Female
  Weight: 51.7 kg

DRUGS (5)
  1. TRACLEER [Suspect]
     Indication: SCLERODERMA
     Dosage: SEE IMAGE
     Route: 048
     Dates: start: 20050701, end: 20050701
  2. TRACLEER [Suspect]
     Indication: SCLERODERMA
     Dosage: SEE IMAGE
     Route: 048
     Dates: start: 20050504, end: 20050715
  3. TRACLEER [Suspect]
     Indication: SCLERODERMA
     Dosage: SEE IMAGE
     Route: 048
     Dates: start: 20050825, end: 20050912
  4. OMEPRAZOLE [Concomitant]
  5. CLONIDINE [Concomitant]

REACTIONS (4)
  - ALANINE AMINOTRANSFERASE INCREASED [None]
  - ASPARTATE AMINOTRANSFERASE INCREASED [None]
  - BLOOD ALKALINE PHOSPHATASE INCREASED [None]
  - BLOOD BILIRUBIN INCREASED [None]
